FAERS Safety Report 15574671 (Version 2)
Quarter: 2019Q1

REPORT INFORMATION
  Report Type: Spontaneous
  Country: US (occurrence: US)
  Receive Date: 20181101
  Receipt Date: 20190116
  Transmission Date: 20190417
  Serious: Yes (Other)
  Sender: FDA-Public Use
  Company Number: US-NOVOPROD-628943

PATIENT
  Age: 36 Year
  Sex: Female

DRUGS (2)
  1. SAXENDA [Suspect]
     Active Substance: LIRAGLUTIDE
     Indication: WEIGHT DECREASED
     Dosage: UNK
     Route: 058
     Dates: start: 201508
  2. SAXENDA [Suspect]
     Active Substance: LIRAGLUTIDE
     Dosage: 3 MG, UNK
     Route: 058
     Dates: end: 20171101

REACTIONS (4)
  - Weight increased [Unknown]
  - Exposure during pregnancy [Recovered/Resolved]
  - Mental disorder [Unknown]
  - Caesarean section [Unknown]

NARRATIVE: CASE EVENT DATE: 20180611
